FAERS Safety Report 26062025 (Version 1)
Quarter: 2025Q4

REPORT INFORMATION
  Report Type: Spontaneous
  Country: US (occurrence: None)
  Receive Date: 20251119
  Receipt Date: 20251119
  Transmission Date: 20260118
  Serious: No
  Sender: CHIESI
  Company Number: US-CHIESI-2025CHF06063

PATIENT
  Sex: Male

DRUGS (4)
  1. BETHKIS [Suspect]
     Active Substance: TOBRAMYCIN
     Indication: Pseudomonas infection
     Dosage: 1 DOSAGE FORM, BID
     Dates: start: 202408
  2. BETHKIS [Suspect]
     Active Substance: TOBRAMYCIN
     Indication: Burkholderia mallei infection
  3. BETHKIS [Suspect]
     Active Substance: TOBRAMYCIN
     Indication: Burkholderia pseudomallei infection
  4. BETHKIS [Suspect]
     Active Substance: TOBRAMYCIN
     Indication: Off label use

REACTIONS (6)
  - Seasonal allergy [Unknown]
  - Allergy to animal [Unknown]
  - Dust allergy [Unknown]
  - Cockroach allergy [Unknown]
  - Off label use [Unknown]
  - Off label use [Unknown]
